FAERS Safety Report 25770253 (Version 1)
Quarter: 2025Q3

REPORT INFORMATION
  Report Type: Spontaneous
  Country: KR (occurrence: KR)
  Receive Date: 20250907
  Receipt Date: 20250907
  Transmission Date: 20251020
  Serious: Yes (Hospitalization)
  Sender: AMGEN
  Company Number: KR-AMGEN-KORSP2025174852

PATIENT

DRUGS (1)
  1. PROLIA [Suspect]
     Active Substance: DENOSUMAB
     Indication: Product used for unknown indication
     Route: 065

REACTIONS (1)
  - Pneumonia [Unknown]
